FAERS Safety Report 15736434 (Version 3)
Quarter: 2019Q3

REPORT INFORMATION
  Report Type: Report from Study
  Country: None (occurrence: US)
  Receive Date: 20181218
  Receipt Date: 20190830
  Transmission Date: 20191004
  Serious: Yes (Hospitalization)
  Sender: FDA-Public Use
  Company Number: US-ABBVIE-18P-163-2594403-00

PATIENT
  Age: 77 Year
  Sex: Male
  Weight: 65.83 kg

DRUGS (12)
  1. CLONAZEPAM. [Concomitant]
     Active Substance: CLONAZEPAM
     Indication: RAPID EYE MOVEMENTS SLEEP ABNORMAL
     Route: 048
     Dates: start: 2016
  2. FLORINEF ACETATE [Concomitant]
     Active Substance: FLUDROCORTISONE ACETATE
     Indication: ORTHOSTATIC HYPOTENSION
     Route: 048
     Dates: start: 20161003
  3. MELATONIN [Concomitant]
     Active Substance: MELATONIN
     Indication: SLEEP DISORDER
     Route: 048
     Dates: start: 201608
  4. DUOPA [Suspect]
     Active Substance: CARBIDOPA\LEVODOPA
     Indication: PARKINSON^S DISEASE
     Dosage: TITRATION
     Route: 050
     Dates: start: 20170119, end: 20170119
  5. COQ10 [Concomitant]
     Active Substance: UBIDECARENONE
     Indication: ROUTINE HEALTH MAINTENANCE
     Route: 048
     Dates: start: 2011
  6. DUOPA [Suspect]
     Active Substance: CARBIDOPA\LEVODOPA
     Route: 050
     Dates: start: 20170119, end: 20181206
  7. MIRALAX [Concomitant]
     Active Substance: POLYETHYLENE GLYCOL 3350
     Indication: CONSTIPATION
     Route: 048
     Dates: start: 2010
  8. OMEPRAZOLE. [Concomitant]
     Active Substance: OMEPRAZOLE
     Indication: GASTROOESOPHAGEAL REFLUX DISEASE
     Route: 048
     Dates: start: 2000
  9. VITAMIN D3 [Concomitant]
     Active Substance: CHOLECALCIFEROL
     Indication: ROUTINE HEALTH MAINTENANCE
     Route: 048
     Dates: start: 2015
  10. ASPIRIN. [Concomitant]
     Active Substance: ASPIRIN
     Indication: CARDIOVASCULAR EVENT PROPHYLAXIS
     Route: 048
     Dates: start: 2000
  11. TAMSULOSIN [Concomitant]
     Active Substance: TAMSULOSIN
     Indication: HYPERTONIC BLADDER
     Route: 048
     Dates: start: 20160226
  12. DUOPA [Suspect]
     Active Substance: CARBIDOPA\LEVODOPA
     Route: 050
     Dates: start: 20181207

REACTIONS (1)
  - Subdural haematoma [Recovered/Resolved]

NARRATIVE: CASE EVENT DATE: 20181206
